FAERS Safety Report 10470604 (Version 1)
Quarter: 2014Q3

REPORT INFORMATION
  Report Type: Spontaneous
  Country: US (occurrence: US)
  Receive Date: 20140923
  Receipt Date: 20140923
  Transmission Date: 20150326
  Serious: Yes (Other)
  Sender: FDA-Public Use
  Company Number: CHPA2014US012340

PATIENT
  Sex: Female

DRUGS (4)
  1. GAS-X EXTRA STRENGTH [Suspect]
     Active Substance: DIMETHICONE
     Dosage: UNK
     Route: 048
     Dates: start: 2014
  2. GAS-X [Suspect]
     Active Substance: DIMETHICONE
  3. ACETYLSALICYLIC ACID [Suspect]
     Active Substance: ASPIRIN
  4. IBUPROFEN. [Suspect]
     Active Substance: IBUPROFEN

REACTIONS (1)
  - Haemorrhage [Unknown]
